FAERS Safety Report 6082751-9 (Version None)
Quarter: 2009Q1

REPORT INFORMATION
  Report Type: 
  Country: None (occurrence: None)
  Receive Date: 20090218
  Receipt Date: 20090206
  Transmission Date: 20090719
  Serious: Yes (Other)
  Sender: FDA-Public Use
  Company Number: US-SANOFI-SYNTHELABO-A03200706424

PATIENT
  Sex: Male
  Weight: 81.6 kg

DRUGS (3)
  1. LEXAPRO [Concomitant]
     Indication: DEPRESSION
     Dosage: 10-30 MG DAILY
     Route: 048
     Dates: end: 20070213
  2. LEXAPRO [Concomitant]
     Indication: ANXIETY
     Dosage: 10-30 MG DAILY
     Route: 048
     Dates: end: 20070213
  3. AMBIEN [Suspect]
     Indication: SLEEP DISORDER
     Dosage: UNK
     Route: 048
     Dates: start: 20061201, end: 20070101

REACTIONS (5)
  - AGGRESSION [None]
  - AMNESIA [None]
  - PHYSICAL ASSAULT [None]
  - SOMNAMBULISM [None]
  - THEFT [None]
